FAERS Safety Report 24146231 (Version 2)
Quarter: 2024Q3

REPORT INFORMATION
  Report Type: Spontaneous
  Country: US (occurrence: US)
  Receive Date: 20240729
  Receipt Date: 20240822
  Transmission Date: 20241017
  Serious: No
  Sender: ROCHE
  Company Number: US-ROCHE-10000040480

PATIENT
  Age: 55 Year
  Sex: Female

DRUGS (1)
  1. OCREVUS [Suspect]
     Active Substance: OCRELIZUMAB
     Indication: Multiple sclerosis
     Dosage: STRENGTH: OCREVUS SDV 300MG/10ML ?2 VIALS INFUSED EVERY 6 MONTHS
     Route: 042

REACTIONS (3)
  - Fatigue [Unknown]
  - Headache [Unknown]
  - Off label use [Unknown]
